FAERS Safety Report 4413707-7 (Version None)
Quarter: 2004Q2

REPORT INFORMATION
  Report Type: 
  Country: None (occurrence: None)
  Receive Date: 20040630
  Receipt Date: 20040303
  Transmission Date: 20050107
  Serious: No
  Sender: FDA-Public Use
  Company Number: 04P-163-0252239-00

PATIENT
  Age: 63 Year
  Sex: Female
  Weight: 96.1626 kg

DRUGS (5)
  1. HUMIRA [Suspect]
     Indication: RHEUMATOID ARTHRITIS
     Dosage: 40 MG, 1 IN 2 WK, SUBCUTANEOUS
     Route: 058
     Dates: start: 20030401, end: 20040301
  2. HUMIRA [Suspect]
     Indication: RHEUMATOID ARTHRITIS
     Dosage: 40 MG, 1 IN 2 WK, SUBCUTANEOUS
     Route: 058
     Dates: start: 20040301
  3. PREDNISONE [Concomitant]
  4. CELECOXIB [Concomitant]
  5. COUMADIN [Concomitant]

REACTIONS (4)
  - CONDITION AGGRAVATED [None]
  - INFECTION [None]
  - JOINT SWELLING [None]
  - OEDEMA PERIPHERAL [None]
